FAERS Safety Report 4665138-2 (Version None)
Quarter: 2005Q2

REPORT INFORMATION
  Report Type: 
  Country: None (occurrence: None)
  Receive Date: 20050517
  Receipt Date: 20050504
  Transmission Date: 20051028
  Serious: Yes (Other)
  Sender: FDA-Public Use
  Company Number: 2005070733

PATIENT
  Age: 47 Year
  Sex: Male
  Weight: 136 kg

DRUGS (1)
  1. GENOTROPIN [Suspect]
     Indication: HYPOPITUITARISM
     Dosage: 0.4 MG (0.4 MG, DAILY), SUBCUTANEOUS
     Route: 058
     Dates: start: 20000320, end: 20050409

REACTIONS (1)
  - RETINAL DISORDER [None]
